FAERS Safety Report 15684718 (Version 2)
Quarter: 2018Q4

REPORT INFORMATION
  Report Type: Spontaneous
  Country: ZA (occurrence: ZA)
  Receive Date: 20181204
  Receipt Date: 20181219
  Transmission Date: 20190205
  Serious: Yes (Hospitalization)
  Sender: FDA-Public Use
  Company Number: ZA-PFIZER INC-2018494612

PATIENT
  Age: 60 Year
  Sex: Male

DRUGS (4)
  1. DISPRIN [Suspect]
     Active Substance: ASPIRIN
     Dosage: 300 MG, UNK
  2. HUMALOG MIX [Suspect]
     Active Substance: INSULIN LISPRO
     Dosage: 100 IU, UNK
  3. ASPAVOR [Suspect]
     Active Substance: ATORVASTATIN
     Dosage: 10 MG, 1X/DAY
  4. MYLAN METFORMIN [Suspect]
     Active Substance: METFORMIN HYDROCHLORIDE
     Dosage: 500 MG, UNK

REACTIONS (1)
  - Cerebrovascular accident [Not Recovered/Not Resolved]

NARRATIVE: CASE EVENT DATE: 2018
